FAERS Safety Report 7204669-8 (Version None)
Quarter: 2010Q4

REPORT INFORMATION
  Report Type: 
  Country: None (occurrence: None)
  Receive Date: 20101230
  Receipt Date: 20101213
  Transmission Date: 20110411
  Serious: No
  Sender: FDA-Public Use
  Company Number: US-PFIZER INC-US-WYE-H08156209

PATIENT
  Age: 67 Year
  Sex: Female
  Weight: 91.2 kg

DRUGS (4)
  1. ADVIL [Suspect]
     Indication: ARTHRALGIA
     Dosage: 3.0 DF, 2X/DAY
     Route: 048
     Dates: start: 20090205
  2. ADVIL [Suspect]
     Indication: BACK PAIN
  3. TOPROL-XL [Concomitant]
  4. ACCUPRIL [Concomitant]

REACTIONS (5)
  - DIZZINESS [None]
  - DRUG INEFFECTIVE [None]
  - DYSPNOEA [None]
  - INCORRECT DOSE ADMINISTERED [None]
  - MYALGIA [None]
